FAERS Safety Report 6392131-4 (Version None)
Quarter: 2009Q4

REPORT INFORMATION
  Report Type: 
  Country: None (occurrence: None)
  Receive Date: 20091005
  Receipt Date: 20090924
  Transmission Date: 20100525
  Serious: Yes (Hospitalization, Other)
  Sender: FDA-Public Use
  Company Number: ADR33022009

PATIENT
  Age: 69 Year
  Sex: Female

DRUGS (10)
  1. RISPERIDONE [Suspect]
     Dosage: 0.5 MG
  2. CITALOPRAM HYDROBROMIDE [Suspect]
     Dosage: 20 MG
  3. ZOPICLONE(7.5MG) [Concomitant]
  4. CO-CODAMOL [Concomitant]
  5. DICLOFENAC [Concomitant]
  6. DOMPERIDONE [Concomitant]
  7. FUROSEMIDE [Concomitant]
  8. LOPERAMIDE [Concomitant]
  9. LOPRAZOLAM [Concomitant]
  10. PROPRANOLOL [Concomitant]

REACTIONS (21)
  - ABDOMINAL PAIN [None]
  - ABDOMINAL TENDERNESS [None]
  - BLOOD CREATININE INCREASED [None]
  - CACHEXIA [None]
  - CARDIAC MURMUR [None]
  - CHOLELITHIASIS [None]
  - CLOSTRIDIUM DIFFICILE COLITIS [None]
  - COLON CANCER [None]
  - COLONIC POLYP [None]
  - DECREASED APPETITE [None]
  - DEHYDRATION [None]
  - DIARRHOEA [None]
  - DUODENAL ULCER [None]
  - FAECES DISCOLOURED [None]
  - GASTROINTESTINAL DISORDER [None]
  - HAEMOGLOBIN DECREASED [None]
  - LARGE INTESTINAL ULCER [None]
  - MALAISE [None]
  - PALLOR [None]
  - PLATELET COUNT INCREASED [None]
  - VOMITING [None]
